FAERS Safety Report 7173920-5 (Version None)
Quarter: 2010Q4

REPORT INFORMATION
  Report Type: 
  Country: None (occurrence: None)
  Receive Date: 20101219
  Receipt Date: 20100312
  Transmission Date: 20110411
  Serious: No
  Sender: FDA-Public Use
  Company Number: US-AMGEN-KDL399123

PATIENT

DRUGS (9)
  1. ENBREL [Suspect]
     Indication: PRODUCT USED FOR UNKNOWN INDICATION
     Dosage: 50 MG, QWK
     Route: 058
  2. HYDROXYCHLOROQUINE SULFATE [Concomitant]
  3. ACETAMINOPHEN W/ CODEINE [Concomitant]
     Dosage: UNK UNK, UNK
  4. SERTRALINE HYDROCHLORIDE [Concomitant]
     Dosage: 100 MG, UNK
  5. PREGABALIN [Concomitant]
     Dosage: 300 MG, UNK
  6. FLUTICASONE/SALMETEROL [Concomitant]
  7. CYANOCOBALAMIN [Concomitant]
     Dosage: UNK UNK, UNK
  8. ALBUTEROL SULFATE [Concomitant]
  9. LOVAZA [Concomitant]
     Dosage: 340 MG, UNK

REACTIONS (3)
  - ABDOMINAL PAIN [None]
  - GASTROINTESTINAL SOUNDS ABNORMAL [None]
  - HEADACHE [None]
